FAERS Safety Report 7648168-8 (Version None)
Quarter: 2011Q3

REPORT INFORMATION
  Report Type: 
  Country: None (occurrence: None)
  Receive Date: 20110801
  Receipt Date: 20110718
  Transmission Date: 20111222
  Serious: No
  Sender: FDA-Public Use
  Company Number: US-B.I. PHARMACEUTICALS,INC./RIDGEFIELD-2011-BP-17939BP

PATIENT
  Sex: Male

DRUGS (2)
  1. ALBUTEROL SULFATE AUTOHALER [Concomitant]
  2. SPIRIVA [Suspect]

REACTIONS (1)
  - VISUAL IMPAIRMENT [None]
